FAERS Safety Report 21369241 (Version 2)
Quarter: 2025Q2

REPORT INFORMATION
  Report Type: Spontaneous
  Country: RO (occurrence: RO)
  Receive Date: 20220923
  Receipt Date: 20250531
  Transmission Date: 20250717
  Serious: Yes (Other)
  Sender: AUROBINDO
  Company Number: RO-AstraZeneca-2022A299461

PATIENT
  Age: 65 Year
  Sex: Female

DRUGS (6)
  1. ROSUVASTATIN [Suspect]
     Active Substance: ROSUVASTATIN
     Indication: Hyperlipidaemia
     Route: 048
  2. ROSUVASTATIN [Suspect]
     Active Substance: ROSUVASTATIN
     Indication: Lipids increased
  3. SIMVASTATIN [Suspect]
     Active Substance: SIMVASTATIN
     Indication: Acute coronary syndrome
     Dosage: 80 MILLIGRAM, ONCE A DAY (DAILY, HIGH DOSE)
     Route: 065
  4. AZATHIOPRINE [Concomitant]
     Active Substance: AZATHIOPRINE
     Indication: Product used for unknown indication
     Route: 065
  5. EZETIMIBE [Concomitant]
     Active Substance: EZETIMIBE
     Indication: Hyperlipidaemia
     Dosage: 20 MILLIGRAM, EVERY WEEK
     Route: 065
  6. EZETIMIBE [Concomitant]
     Active Substance: EZETIMIBE
     Indication: Lipids increased

REACTIONS (4)
  - Immune-mediated myositis [Recovered/Resolved]
  - Blood creatine phosphokinase increased [Recovered/Resolved]
  - Polymyositis [Recovered/Resolved]
  - Myalgia [Not Recovered/Not Resolved]
